FAERS Safety Report 12893073 (Version 3)
Quarter: 2017Q1

REPORT INFORMATION
  Report Type: Spontaneous
  Country: CA (occurrence: CA)
  Receive Date: 20161028
  Receipt Date: 20170217
  Transmission Date: 20170428
  Serious: Yes (Other)
  Sender: FDA-Public Use
  Company Number: CA-PFIZER INC-2016161419

PATIENT
  Age: 65 Year
  Sex: Female

DRUGS (4)
  1. METHOTREXATE SODIUM. [Suspect]
     Active Substance: METHOTREXATE SODIUM
     Dosage: UNK
  2. APO-HYDROXYQUINE [Suspect]
     Active Substance: HYDROXYCHLOROQUINE SULFATE
     Dosage: UNK
  3. HUMIRA [Suspect]
     Active Substance: ADALIMUMAB
     Dosage: UNK
     Route: 058
  4. ACTEMRA [Suspect]
     Active Substance: TOCILIZUMAB
     Dosage: UNK

REACTIONS (5)
  - Interstitial lung disease [Unknown]
  - Abdominal pain [Unknown]
  - Drug intolerance [Unknown]
  - Hypertensive crisis [Unknown]
  - Liver disorder [Unknown]
